FAERS Safety Report 8078444-9 (Version None)
Quarter: 2012Q1

REPORT INFORMATION
  Report Type: 
  Country: None (occurrence: None)
  Receive Date: 20120127
  Receipt Date: 20120127
  Transmission Date: 20120608
  Serious: Yes (Hospitalization)
  Sender: FDA-Public Use
  Company Number: None

PATIENT
  Age: 81 Year
  Sex: Male

DRUGS (15)
  1. REVLIMID [Suspect]
     Indication: MULTIPLE MYELOMA
     Dosage: 25MG DAILY X 21/28 DAYS BY MOUTH
     Route: 048
     Dates: start: 20111229, end: 20120109
  2. LEVOTHYROXINE SODIUM [Concomitant]
  3. COMBIVENT [Concomitant]
  4. MORPHINE [Concomitant]
  5. NORCO [Concomitant]
  6. DEXAMETHASONE [Concomitant]
  7. TEMAZEPAM [Concomitant]
  8. FAMOTIDINE [Concomitant]
  9. MAGNESIUM OXIDE [Concomitant]
  10. ASPIRIN [Concomitant]
  11. FLUTICASONE PROPIONATE [Concomitant]
  12. TRAZODONE HCL [Concomitant]
  13. POLYETHYLENE GLYCOL [Concomitant]
  14. TERAZOSIN HCL [Concomitant]
  15. FUROSEMIDE [Concomitant]

REACTIONS (1)
  - PNEUMONIA ASPIRATION [None]
